FAERS Safety Report 10408503 (Version 1)
Quarter: 2014Q3

REPORT INFORMATION
  Report Type: Spontaneous
  Country: US (occurrence: None)
  Receive Date: 20140825
  Receipt Date: 20140825
  Transmission Date: 20150326
  Serious: No
  Sender: FDA-Public Use
  Company Number: None

PATIENT
  Age: 57 Year
  Sex: Female
  Weight: 66.23 kg

DRUGS (1)
  1. NORVASC [Suspect]
     Active Substance: AMLODIPINE BESYLATE
     Indication: BLOOD PRESSURE ABNORMAL
     Route: 048
     Dates: start: 20040826

REACTIONS (4)
  - Flank pain [None]
  - Product quality issue [None]
  - Product substitution issue [None]
  - Paraesthesia [None]

NARRATIVE: CASE EVENT DATE: 20140515
